FAERS Safety Report 9803970 (Version 1)
Quarter: 2014Q1

REPORT INFORMATION
  Report Type: Spontaneous
  Country: US (occurrence: None)
  Receive Date: 20140103
  Receipt Date: 20140103
  Transmission Date: 20141002
  Serious: Yes (Other)
  Sender: FDA-Public Use
  Company Number: SYM-2013-14543

PATIENT
  Age: 7 Year
  Sex: Female

DRUGS (1)
  1. XENAZINE [Suspect]
     Indication: CHOREA
     Dosage: 6.25 MG, 1 IN 1 D
     Route: 048
     Dates: start: 20131016

REACTIONS (1)
  - Convulsion [None]
